FAERS Safety Report 7962681-5 (Version None)
Quarter: 2011Q4

REPORT INFORMATION
  Report Type: 
  Country: None (occurrence: None)
  Receive Date: 20111207
  Receipt Date: 20111128
  Transmission Date: 20120403
  Serious: Yes (Life-Threatening, Hospitalization, Other)
  Sender: FDA-Public Use
  Company Number: US-CEPHALON-2011006004

PATIENT
  Weight: 66 kg

DRUGS (11)
  1. CLONIDINE [Concomitant]
     Indication: HYPERTENSION
     Route: 048
  2. CYMBALTA [Concomitant]
     Route: 048
  3. VALIUM [Concomitant]
     Indication: PANIC ATTACK
     Route: 048
  4. ZOVIRAX [Concomitant]
     Indication: ACNE
     Route: 048
  5. PERCOCET [Concomitant]
     Indication: PAIN
     Route: 048
  6. PROCARDIA XL [Concomitant]
     Indication: BLUE TOE SYNDROME
     Route: 048
     Dates: start: 20090101
  7. PROVIGIL [Suspect]
     Indication: FEELING OF RELAXATION
  8. DULCOLAX [Concomitant]
     Indication: FAECES HARD
     Route: 048
  9. PROVIGIL [Suspect]
     Indication: ATTENTION DEFICIT/HYPERACTIVITY DISORDER
  10. WELLBUTRIN [Concomitant]
     Route: 048
  11. GABAPENTIN [Concomitant]
     Indication: NEUROPATHY PERIPHERAL
     Route: 048

REACTIONS (4)
  - AORTIC ANEURYSM [None]
  - NEPHROLITHIASIS [None]
  - DRUG TOLERANCE [None]
  - DEPRESSION [None]
